FAERS Safety Report 18451770 (Version 1)
Quarter: 2020Q4

REPORT INFORMATION
  Report Type: Spontaneous
  Country: US (occurrence: US)
  Receive Date: 20201102
  Receipt Date: 20201102
  Transmission Date: 20210114
  Serious: No
  Sender: FDA-Public Use
  Company Number: US-CIPLA LTD.-2020US05991

PATIENT

DRUGS (3)
  1. SALBUTAMOL [Suspect]
     Active Substance: ALBUTEROL
     Dosage: UNK, PRN, TAKEN ONE TO TWO PUFFS EVERY SIX HOURS OR AS NEEDED
     Dates: start: 202008, end: 20200814
  2. SALBUTAMOL [Suspect]
     Active Substance: ALBUTEROL
     Indication: PRODUCT USED FOR UNKNOWN INDICATION
     Dosage: UNK
     Route: 065
  3. SALBUTAMOL [Suspect]
     Active Substance: ALBUTEROL
     Dosage: UNK, PRN, TAKEN ONE TO TWO PUFFS EVERY SIX HOURS OR AS NEEDED
     Dates: start: 2020

REACTIONS (4)
  - Drug delivery system issue [Unknown]
  - Dysgeusia [Unknown]
  - Device maintenance issue [Unknown]
  - Product taste abnormal [Unknown]

NARRATIVE: CASE EVENT DATE: 2020
